FAERS Safety Report 12192635 (Version 1)
Quarter: 2016Q1

REPORT INFORMATION
  Report Type: Spontaneous
  Country: US (occurrence: US)
  Receive Date: 20160318
  Receipt Date: 20160318
  Transmission Date: 20160526
  Serious: Yes (Other)
  Sender: FDA-Public Use
  Company Number: US-JUBILANT CADISTA PHARMACEUTICALS-2015JUB00327

PATIENT
  Age: 65 Year
  Sex: Female
  Weight: 65.31 kg

DRUGS (5)
  1. LAMOTRIGINE. [Suspect]
     Active Substance: LAMOTRIGINE
     Dosage: 50 MG, 1X/DAY
     Route: 048
     Dates: start: 20150911, end: 20150917
  2. LAMOTRIGINE. [Suspect]
     Active Substance: LAMOTRIGINE
     Dosage: 100 MG, 1X/DAY
     Route: 048
     Dates: start: 20150925
  3. PAROXETINE [Concomitant]
     Active Substance: PAROXETINE\PAROXETINE HYDROCHLORIDE
  4. LAMOTRIGINE. [Suspect]
     Active Substance: LAMOTRIGINE
     Dosage: 25 MG, 1X/DAY
     Route: 048
     Dates: start: 20150904, end: 20150910
  5. LAMOTRIGINE. [Suspect]
     Active Substance: LAMOTRIGINE
     Dosage: 75 MG, 1X/DAY
     Route: 048
     Dates: start: 20150918, end: 20150924

REACTIONS (10)
  - Nasopharyngitis [Recovering/Resolving]
  - Eye pruritus [Recovering/Resolving]
  - Suicidal ideation [Unknown]
  - Dizziness [Unknown]
  - Eye swelling [Recovering/Resolving]
  - Flatulence [Unknown]
  - Constipation [Recovered/Resolved]
  - Rhinorrhoea [Recovering/Resolving]
  - Diarrhoea [Unknown]
  - Weight decreased [Unknown]

NARRATIVE: CASE EVENT DATE: 201509
